FAERS Safety Report 15370183 (Version 1)
Quarter: 2018Q3

REPORT INFORMATION
  Report Type: Spontaneous
  Country: US (occurrence: US)
  Receive Date: 20180911
  Receipt Date: 20180911
  Transmission Date: 20181010
  Serious: No
  Sender: FDA-Public Use
  Company Number: US-MYLANLABS-2018M1064350

PATIENT
  Age: 78 Year
  Sex: Male
  Weight: 113 kg

DRUGS (14)
  1. PREDNISONE  5 MG [Concomitant]
     Active Substance: PREDNISONE
     Indication: RHEUMATOID ARTHRITIS
     Dosage: UNK, QD
  2. ATORVASTATIN 40 MG [Concomitant]
     Active Substance: ATORVASTATIN
     Indication: BLOOD CHOLESTEROL ABNORMAL
     Dosage: UNK
  3. ENTRESTO [Concomitant]
     Active Substance: SACUBITRIL\VALSARTAN
     Indication: SUPPLEMENTATION THERAPY
  4. OMEPRAZOLE  40 MG [Concomitant]
     Active Substance: OMEPRAZOLE
     Indication: GASTROOESOPHAGEAL REFLUX DISEASE
     Dosage: UNK, QD
  5. PAXIL   20 MG                            /00500401/ [Concomitant]
     Indication: ANXIETY
     Dosage: UNK, QD
  6. FENTANYL TRANSDERMAL SYSTEM [Suspect]
     Active Substance: FENTANYL
     Indication: PAIN
     Dosage: UNK
     Route: 062
     Dates: start: 20160516
  7. FUROSEMIDE 40 MG [Concomitant]
     Active Substance: FUROSEMIDE
     Indication: POLYURIA
     Dosage: UNK, BID
  8. METOPROLOL  50 MG [Concomitant]
     Active Substance: METOPROLOL
     Indication: ARRHYTHMIA
     Dosage: UNK, QD
  9. ELIQUIS  2.5 MG BID [Concomitant]
     Indication: ATRIAL FIBRILLATION
     Dosage: UNK, BID
  10. FENOFIBRATE 160 MG [Concomitant]
     Active Substance: FENOFIBRATE
     Indication: LIPIDS
     Dosage: UNK, QD
  11. FOLIC ACID. [Concomitant]
     Active Substance: FOLIC ACID
     Indication: PRODUCT USED FOR UNKNOWN INDICATION
     Dosage: UNK, QD
  12. SPIRONOLACTONE  25 MG [Concomitant]
     Active Substance: SPIRONOLACTONE
     Indication: CARDIAC FAILURE CONGESTIVE
     Dosage: UNK, QD
  13. METHOTREXATE  2.5 MG [Concomitant]
     Active Substance: METHOTREXATE
     Indication: IMMUNOSUPPRESSION
     Dosage: UNK (6 TABLETS ON SUNDAY ONLY)
  14. ENTRESTO [Concomitant]
     Active Substance: SACUBITRIL\VALSARTAN
     Indication: HYPERTENSION
     Dosage: UNK

REACTIONS (2)
  - Somnolence [Not Recovered/Not Resolved]
  - Drug ineffective [Not Recovered/Not Resolved]

NARRATIVE: CASE EVENT DATE: 20160516
